FAERS Safety Report 9032046 (Version 2)
Quarter: 2013Q1

REPORT INFORMATION
  Report Type: Spontaneous
  Country: JP (occurrence: JP)
  Receive Date: 20130125
  Receipt Date: 20130206
  Transmission Date: 20140127
  Serious: Yes (Other)
  Sender: FDA-Public Use
  Company Number: PHHY2013JP006088

PATIENT
  Age: 69 Year
  Sex: Female

DRUGS (2)
  1. ZOMETA [Suspect]
     Dosage: UNK UKN, UNK
     Route: 041
  2. ANTINEOPLASTIC AGENTS [Concomitant]
     Indication: BREAST CANCER
     Dosage: UNK UKN, UNK

REACTIONS (13)
  - Renal tubular acidosis [Unknown]
  - Heart rate increased [Unknown]
  - Myocardial infarction [Unknown]
  - Blood pressure increased [Unknown]
  - Electrocardiogram QT prolonged [Unknown]
  - Hypoventilation [Unknown]
  - Muscular weakness [Unknown]
  - Altered state of consciousness [Unknown]
  - Metabolic acidosis [Unknown]
  - Respiratory disorder [Unknown]
  - Hypokinesia [Unknown]
  - Dyspnoea [Unknown]
  - Hypokalaemia [Unknown]
